FAERS Safety Report 9346902 (Version 2)
Quarter: 2013Q2

REPORT INFORMATION
  Report Type: Spontaneous
  Country: US (occurrence: US)
  Receive Date: 20130613
  Receipt Date: 20130625
  Transmission Date: 20140414
  Serious: Yes (Other)
  Sender: FDA-Public Use
  Company Number: PHEH2013US012493

PATIENT
  Age: 62 Year
  Sex: Female

DRUGS (10)
  1. GILENYA [Suspect]
     Dosage: 0.5 MG, QD
     Route: 048
     Dates: start: 20111130
  2. METHADONE [Concomitant]
     Dosage: 1 DF, TID
  3. SYNTHROID [Concomitant]
     Dosage: 50 UG, UNK
  4. TYLENOL [Concomitant]
     Dosage: 5 MG, UNK
  5. METADATE [Concomitant]
     Dosage: 20 MG, UNK
  6. OLANZAPINE [Concomitant]
     Dosage: 2.5 MG, UNK
  7. LIPITOR [Concomitant]
     Dosage: 10 MG, UNK
  8. PREMARIN [Concomitant]
     Dosage: 0.45 MG, UNK
  9. LASIX [Concomitant]
     Dosage: 40 MG, UNK
  10. ASPIRIN [Concomitant]
     Dosage: 81 MG, UNK

REACTIONS (1)
  - Squamous cell carcinoma [Unknown]
